FAERS Safety Report 19245325 (Version 1)
Quarter: 2021Q2

REPORT INFORMATION
  Report Type: Spontaneous
  Country: US (occurrence: US)
  Receive Date: 20210512
  Receipt Date: 20210512
  Transmission Date: 20210717
  Serious: No
  Sender: FDA-Public Use
  Company Number: US-SA-2021SA154575

PATIENT
  Age: 12 Year
  Sex: Male

DRUGS (2)
  1. DUPIXENT [Suspect]
     Active Substance: DUPILUMAB
     Indication: DERMATITIS ATOPIC
     Dosage: 300 MG, Q3W
     Dates: start: 202005
  2. EUCRISA [Concomitant]
     Active Substance: CRISABOROLE

REACTIONS (7)
  - Dermatitis atopic [Not Recovered/Not Resolved]
  - Skin exfoliation [Unknown]
  - Pruritus [Recovering/Resolving]
  - Product use issue [Unknown]
  - Skin haemorrhage [Unknown]
  - Eczema [Unknown]
  - Dry skin [Unknown]

NARRATIVE: CASE EVENT DATE: 202005
